FAERS Safety Report 10469965 (Version 1)
Quarter: 2014Q3

REPORT INFORMATION
  Report Type: Spontaneous
  Country: DE (occurrence: None)
  Receive Date: 20140919
  Receipt Date: 20140919
  Transmission Date: 20150326
  Serious: Yes (Hospitalization, Other)
  Sender: FDA-Public Use
  Company Number: DE-ZYDUS-004668

PATIENT
  Age: 59 Year
  Sex: Female

DRUGS (3)
  1. PEGINTERFERON ALFA-2B [Suspect]
     Active Substance: PEGINTERFERON ALFA-2B
     Dates: start: 20130826
  2. TELAPREVIR [Suspect]
     Active Substance: TELAPREVIR
     Dates: start: 2013
  3. RIBAVIRIN. [Suspect]
     Active Substance: RIBAVIRIN
     Dates: start: 20130826

REACTIONS (7)
  - Nausea [None]
  - Toxicity to various agents [None]
  - Malaise [None]
  - Pyrexia [None]
  - Leukopenia [None]
  - Liver transplant [None]
  - Anaemia [None]
